FAERS Safety Report 15419732 (Version 2)
Quarter: 2018Q4

REPORT INFORMATION
  Report Type: Spontaneous
  Country: JP (occurrence: JP)
  Receive Date: 20180924
  Receipt Date: 20181026
  Transmission Date: 20190204
  Serious: Yes (Other)
  Sender: FDA-Public Use
  Company Number: JP-EISAI MEDICAL RESEARCH-EC-2018-045388

PATIENT
  Sex: Female

DRUGS (1)
  1. HALAVEN [Suspect]
     Active Substance: ERIBULIN MESYLATE
     Indication: BREAST CANCER RECURRENT
     Route: 041
     Dates: start: 20180501, end: 20181001

REACTIONS (1)
  - Muscular weakness [Recovering/Resolving]

NARRATIVE: CASE EVENT DATE: 20180911
